FAERS Safety Report 7302266-7 (Version None)
Quarter: 2011Q1

REPORT INFORMATION
  Report Type: 
  Country: None (occurrence: None)
  Receive Date: 20110208
  Receipt Date: 20110128
  Transmission Date: 20110831
  Serious: Yes (Hospitalization, Disabling, Other)
  Sender: FDA-Public Use
  Company Number: 2010SP020793

PATIENT
  Age: 34 Year
  Sex: Female
  Weight: 67.586 kg

DRUGS (5)
  1. MULTI-VITAMIN [Concomitant]
  2. CLARITIN [Concomitant]
  3. NUVARING [Suspect]
  4. ASPIRIN [Suspect]
     Indication: DEEP VEIN THROMBOSIS
  5. NUVARING [Suspect]
     Indication: PRODUCT USED FOR UNKNOWN INDICATION
     Dates: start: 20090310, end: 20090730

REACTIONS (50)
  - HEART RATE IRREGULAR [None]
  - OEDEMA PERIPHERAL [None]
  - INTERNATIONAL NORMALISED RATIO INCREASED [None]
  - ANXIETY [None]
  - EYE SWELLING [None]
  - CHRONIC FATIGUE SYNDROME [None]
  - SLEEP APNOEA SYNDROME [None]
  - HYPOKALAEMIA [None]
  - PELVIC PAIN [None]
  - CERVIX DISORDER [None]
  - TRICUSPID VALVE INCOMPETENCE [None]
  - PNEUMONITIS [None]
  - VARICOSE VEIN [None]
  - SKIN PAPILLOMA [None]
  - PULMONARY EMBOLISM [None]
  - RESTLESS LEGS SYNDROME [None]
  - URINARY TRACT INFECTION [None]
  - ARTHRALGIA [None]
  - ABDOMINAL PAIN [None]
  - CYTOMEGALOVIRUS TEST POSITIVE [None]
  - CONSTIPATION [None]
  - ANAEMIA [None]
  - DEPRESSION [None]
  - EPSTEIN-BARR VIRUS TEST POSITIVE [None]
  - WEIGHT DECREASED [None]
  - VAGINAL INFECTION [None]
  - HUMAN PAPILLOMA VIRUS TEST POSITIVE [None]
  - MITRAL VALVE INCOMPETENCE [None]
  - PNEUMONIA VIRAL [None]
  - GENERAL PHYSICAL CONDITION ABNORMAL [None]
  - ERYTHEMA NODOSUM [None]
  - ARTHRITIS [None]
  - PRESYNCOPE [None]
  - AORTIC EMBOLUS [None]
  - FATIGUE [None]
  - BRONCHITIS [None]
  - FIBRIN D DIMER INCREASED [None]
  - PRODUCT SUBSTITUTION ISSUE [None]
  - DEEP VEIN THROMBOSIS [None]
  - IMPAIRED WORK ABILITY [None]
  - CARDIOVASCULAR DISORDER [None]
  - NIGHT SWEATS [None]
  - CORONARY ARTERY THROMBOSIS [None]
  - NOCTURIA [None]
  - ARTERIOSCLEROSIS CORONARY ARTERY [None]
  - OVARIAN CYST [None]
  - RASH [None]
  - SYNCOPE [None]
  - CARDIAC MURMUR [None]
  - PULMONARY VALVE INCOMPETENCE [None]
